FAERS Safety Report 8266331-2 (Version None)
Quarter: 2012Q2

REPORT INFORMATION
  Report Type: 
  Country: None (occurrence: None)
  Receive Date: 20120406
  Receipt Date: 20120402
  Transmission Date: 20120825
  Serious: Yes (Hospitalization, Other)
  Sender: FDA-Public Use
  Company Number: US-PFIZER INC-2012083571

PATIENT
  Sex: Female
  Weight: 72.109 kg

DRUGS (4)
  1. LYRICA [Suspect]
     Indication: DIABETIC NEUROPATHY
     Dosage: 75 MG, 3X/DAY
     Route: 048
  2. LOPID [Concomitant]
     Indication: BLOOD CHOLESTEROL ABNORMAL
     Dosage: 600 MG, 2X/DAY
     Route: 048
  3. HYDROCODONE [Concomitant]
     Indication: PAIN
     Dosage: UNK
  4. METFORMIN [Concomitant]
     Indication: DIABETES MELLITUS
     Dosage: UNK

REACTIONS (9)
  - RESTLESSNESS [None]
  - FEELING ABNORMAL [None]
  - MALAISE [None]
  - MUSCULOSKELETAL DISORDER [None]
  - DYSPNOEA [None]
  - PRURITUS [None]
  - PAIN [None]
  - CRYING [None]
  - ARTHRITIS [None]
